FAERS Safety Report 7488520-7 (Version None)
Quarter: 2011Q2

REPORT INFORMATION
  Report Type: 
  Country: None (occurrence: None)
  Receive Date: 20110518
  Receipt Date: 20110513
  Transmission Date: 20111010
  Serious: Yes (Hospitalization)
  Sender: FDA-Public Use
  Company Number: US-MERCK-1010USA01166

PATIENT
  Age: 58 Year
  Sex: Female
  Weight: 89 kg

DRUGS (3)
  1. FOSAMAX [Suspect]
     Indication: OSTEOPOROSIS
     Route: 048
     Dates: start: 20031001, end: 20091001
  2. FOSAMAX [Suspect]
     Indication: OSTEOPENIA
     Route: 048
     Dates: start: 20031001, end: 20091001
  3. CORTICOSTEROIDS (UNSPECIFIED) [Concomitant]
     Route: 065
     Dates: start: 19760101, end: 20070101

REACTIONS (7)
  - HYPERTENSION [None]
  - TEMPOROMANDIBULAR JOINT SYNDROME [None]
  - GALLBLADDER DISORDER [None]
  - PERIODONTAL DISEASE [None]
  - ARTHROPATHY [None]
  - FEMUR FRACTURE [None]
  - BONE DENSITY DECREASED [None]
